FAERS Safety Report 25614634 (Version 3)
Quarter: 2025Q3

REPORT INFORMATION
  Report Type: Spontaneous
  Country: US (occurrence: US)
  Receive Date: 20250729
  Receipt Date: 20250922
  Transmission Date: 20251020
  Serious: No
  Sender: TAKEDA
  Company Number: US-TAKEDA-2025TUS064098

PATIENT
  Sex: Male
  Weight: 136 kg

DRUGS (25)
  1. ENTYVIO [Suspect]
     Active Substance: VEDOLIZUMAB
     Indication: Crohn^s disease
     Dosage: 108 MILLIGRAM, Q2WEEKS
     Dates: start: 20250312
  2. ENTYVIO [Suspect]
     Active Substance: VEDOLIZUMAB
  3. MESALAMINE [Concomitant]
     Active Substance: MESALAMINE
  4. ROWASA [Concomitant]
     Active Substance: MESALAMINE
  5. CANASA [Concomitant]
     Active Substance: MESALAMINE
  6. MERCAPTOPURINE [Concomitant]
     Active Substance: MERCAPTOPURINE
  7. AZATHIOPRINE [Concomitant]
     Active Substance: AZATHIOPRINE
  8. IMURAN [Concomitant]
     Active Substance: AZATHIOPRINE
  9. TACROLIMUS [Concomitant]
     Active Substance: TACROLIMUS
  10. TYLENOL [Concomitant]
     Active Substance: ACETAMINOPHEN
     Indication: Pain
  11. NORVASC [Concomitant]
     Active Substance: AMLODIPINE BESYLATE
     Dosage: 5 MILLIGRAM, QD
  12. VITAMIN C [Concomitant]
     Active Substance: ASCORBIC ACID
     Dosage: UNK UNK, QD
  13. LIPITOR [Concomitant]
     Active Substance: ATORVASTATIN CALCIUM
     Dosage: 20 MILLIGRAM, QD
  14. CAFFEINE [Concomitant]
     Active Substance: CAFFEINE
     Dosage: 200 MILLIGRAM, QD
  15. CALCIUM [Concomitant]
     Active Substance: CALCIUM
     Dosage: 2000 MILLIGRAM, QD
  16. VITAMIN D3 [Concomitant]
     Active Substance: CHOLECALCIFEROL
     Dosage: 1000 INTERNATIONAL UNIT, QD
  17. TYLENOL PM [Concomitant]
     Active Substance: ACETAMINOPHEN\DIPHENHYDRAMINE
     Dosage: 500 MILLIGRAM, QD
  18. NIZORAL [Concomitant]
     Active Substance: KETOCONAZOLE
  19. LEVOTHYROXINE [Concomitant]
     Active Substance: LEVOTHYROXINE
     Dosage: 75 MICROGRAM/KILOGRAM, QD
  20. MELATONIN [Concomitant]
     Active Substance: MELATONIN
     Dosage: 10 MILLIGRAM, QD
  21. LIALDA [Concomitant]
     Active Substance: MESALAMINE
     Dosage: 1.2 GRAM, BID
  22. OMEGA 3 [Concomitant]
     Active Substance: CAPSAICIN
  23. VITAMIN B6 [Concomitant]
     Active Substance: PYRIDOXINE HYDROCHLORIDE
  24. VITAMIN E [Concomitant]
     Active Substance: .ALPHA.-TOCOPHEROL
     Dosage: UNK UNK, QD
  25. VITAMIN B12 [Concomitant]
     Active Substance: CYANOCOBALAMIN

REACTIONS (3)
  - Device malfunction [Unknown]
  - Injection site discharge [Unknown]
  - Product dose omission issue [Unknown]
